FAERS Safety Report 13575619 (Version 1)
Quarter: 2017Q2

REPORT INFORMATION
  Report Type: Spontaneous
  Country: US (occurrence: US)
  Receive Date: 20170524
  Receipt Date: 20170524
  Transmission Date: 20170830
  Serious: Yes (Death)
  Sender: FDA-Public Use
  Company Number: US-ROCHE-1870941

PATIENT
  Age: 57 Year
  Sex: Male

DRUGS (2)
  1. ZELBORAF [Suspect]
     Active Substance: VEMURAFENIB
     Indication: MALIGNANT LYMPHOID NEOPLASM
     Route: 048
     Dates: start: 20161201
  2. ZELBORAF [Suspect]
     Active Substance: VEMURAFENIB
     Dosage: 4 TABLETS EVERY 12 HOURS
     Route: 048
     Dates: start: 20161130, end: 20170522

REACTIONS (3)
  - Rash [Unknown]
  - Photosensitivity reaction [Unknown]
  - Disease progression [Fatal]

NARRATIVE: CASE EVENT DATE: 20161221
